FAERS Safety Report 5505252-2 (Version None)
Quarter: 2007Q4

REPORT INFORMATION
  Report Type: 
  Country: None (occurrence: None)
  Receive Date: 20071102
  Receipt Date: 20071025
  Transmission Date: 20080405
  Serious: Yes (Other)
  Sender: FDA-Public Use
  Company Number: US-JNJFOC-20071007248

PATIENT
  Sex: Female
  Weight: 48.99 kg

DRUGS (18)
  1. FENTANYL TRANSDERMAL SYSTEM [Suspect]
     Dosage: 100MCG AND 25 MCG PATCHES
     Route: 062
  2. FENTANYL TRANSDERMAL SYSTEM [Suspect]
     Indication: PAIN
     Route: 062
  3. METHADONE HCL [Concomitant]
     Route: 048
  4. LAMICTAL [Concomitant]
     Route: 048
  5. LAMICTAL [Concomitant]
     Indication: BIPOLAR DISORDER
     Route: 048
  6. TRAZODONE HCL [Concomitant]
     Indication: SLEEP DISORDER
     Route: 048
  7. KLONOPIN [Concomitant]
     Route: 048
  8. KLONOPIN [Concomitant]
     Indication: BIPOLAR DISORDER
     Route: 048
  9. LASIX [Concomitant]
     Indication: FLUID RETENTION
     Route: 048
  10. POTASSIUM CHLORIDE [Concomitant]
     Route: 048
  11. LIPITOR [Concomitant]
     Indication: BLOOD CHOLESTEROL
     Route: 048
  12. ASCORBIC ACID [Concomitant]
     Route: 048
  13. VITAMIN E [Concomitant]
     Route: 048
  14. VITAMIN B [Concomitant]
     Route: 048
  15. VITAMIN B-12 [Concomitant]
     Route: 048
  16. CALCIUM [Concomitant]
     Route: 048
  17. VICODIN [Concomitant]
     Indication: PAIN
     Route: 048
  18. ATIVAN [Concomitant]
     Route: 048

REACTIONS (5)
  - ARTHRITIS [None]
  - DRUG ADMINISTERED AT INAPPROPRIATE SITE [None]
  - FALL [None]
  - TARDIVE DYSKINESIA [None]
  - WRONG TECHNIQUE IN DRUG USAGE PROCESS [None]
